FAERS Safety Report 21042645 (Version 2)
Quarter: 2022Q3

REPORT INFORMATION
  Report Type: Spontaneous
  Country: US (occurrence: None)
  Receive Date: 20220705
  Receipt Date: 20220712
  Transmission Date: 20221027
  Serious: Yes (Other)
  Sender: FDA-Public Use
  Company Number: US-Hikma Pharmaceuticals USA Inc.-US-H14001-22-01669

PATIENT
  Age: 37 Year
  Sex: Female

DRUGS (1)
  1. DISULFIRAM [Suspect]
     Active Substance: DISULFIRAM
     Indication: Alcohol use disorder
     Route: 065
     Dates: start: 201902, end: 2019

REACTIONS (6)
  - Muscle spasms [Unknown]
  - Peroneal nerve palsy [Recovering/Resolving]
  - Muscular weakness [Recovering/Resolving]
  - Weight decreased [Unknown]
  - Axonal neuropathy [Unknown]
  - Polyneuropathy [Unknown]

NARRATIVE: CASE EVENT DATE: 20190101
